FAERS Safety Report 24005824 (Version 1)
Quarter: 2024Q2

REPORT INFORMATION
  Report Type: Spontaneous
  Country: US (occurrence: None)
  Receive Date: 20240623
  Receipt Date: 20240623
  Transmission Date: 20240715
  Serious: Yes (Death)
  Sender: FDA-Public Use
  Company Number: None

PATIENT
  Age: 77 Year
  Sex: Male
  Weight: 52.74 kg

DRUGS (17)
  1. RETEVMO [Suspect]
     Active Substance: SELPERCATINIB
     Indication: Lung neoplasm malignant
     Dosage: 40 MG TWICE A DAY ORAL
     Route: 048
     Dates: start: 20220919, end: 20240623
  2. Buspirone 10 mg tablets [Concomitant]
     Dates: start: 20220910, end: 20240623
  3. Folic Acid 800 mcg tablets [Concomitant]
     Dates: start: 20220910, end: 20240623
  4. Jardiance 25 mg tablets [Concomitant]
     Dates: start: 20220910, end: 20240623
  5. Metoprolol tartrate 25 mg tablets [Concomitant]
     Dates: start: 20220910, end: 20240623
  6. Oxycodone 5 mg tablets [Concomitant]
     Dates: start: 20220910, end: 20240623
  7. TRADJENTA [Concomitant]
     Active Substance: LINAGLIPTIN
     Dates: start: 20220910, end: 20240623
  8. Vitamin D 1,000 unit Capsules [Concomitant]
     Dates: start: 20220910, end: 20240623
  9. Benadryl 25 mg ultratabs [Concomitant]
     Dates: start: 20220910, end: 20240623
  10. COQ-10 100 mg capsules [Concomitant]
     Dates: start: 20220910, end: 20240623
  11. Dronabinol 2.5 mg capsules [Concomitant]
     Dates: start: 20220910, end: 20240623
  12. METFORMIN [Concomitant]
     Active Substance: METFORMIN HYDROCHLORIDE
     Dates: start: 20220910, end: 20240623
  13. Ondansetron 8 mg tablets [Concomitant]
     Dates: start: 20220910, end: 20240623
  14. LORAZEPAM [Concomitant]
     Active Substance: LORAZEPAM
     Dates: start: 20220910, end: 20240623
  15. Trazodone 50 mg tablets [Concomitant]
     Dates: start: 20220910, end: 20240623
  16. SILODOSIN [Concomitant]
     Active Substance: SILODOSIN
     Dates: start: 20231210, end: 20240623
  17. Lomotil 2.5 mg tablets [Concomitant]
     Dates: start: 20240215, end: 20240623

REACTIONS (1)
  - Disease progression [None]

NARRATIVE: CASE EVENT DATE: 20240623
